FAERS Safety Report 8321976-6 (Version None)
Quarter: 2012Q2

REPORT INFORMATION
  Report Type: 
  Country: None (occurrence: None)
  Receive Date: 20120430
  Receipt Date: 20120419
  Transmission Date: 20120825
  Serious: Yes (Other)
  Sender: FDA-Public Use
  Company Number: GB-JNJFOC-20120410672

PATIENT
  Age: 43 Year
  Sex: Female

DRUGS (3)
  1. REMICADE [Suspect]
     Route: 042
     Dates: start: 20110901, end: 20111101
  2. HYDROCORTISONE [Concomitant]
     Indication: PREMEDICATION
     Route: 065
  3. REMICADE [Suspect]
     Indication: COLITIS ULCERATIVE
     Route: 042
     Dates: start: 20120330

REACTIONS (7)
  - CHEST PAIN [None]
  - DECREASED APPETITE [None]
  - NAUSEA [None]
  - PAIN [None]
  - COLITIS ULCERATIVE [None]
  - FATIGUE [None]
  - AUTOIMMUNE DISORDER [None]
